FAERS Safety Report 12980977 (Version 1)
Quarter: 2016Q4

REPORT INFORMATION
  Report Type: Report from Study
  Country: ES (occurrence: ES)
  Receive Date: 20161128
  Receipt Date: 20161128
  Transmission Date: 20170207
  Serious: Yes (Other)
  Sender: FDA-Public Use
  Company Number: ES-ELI_LILLY_AND_COMPANY-ES201611003404

PATIENT
  Age: 57 Year
  Sex: Female
  Weight: 56.5 kg

DRUGS (6)
  1. VENTOLIN [Concomitant]
     Active Substance: ALBUTEROL SULFATE
     Indication: BRONCHIECTASIS
     Dosage: UNK
  2. OMEPRAZOLE. [Concomitant]
     Active Substance: OMEPRAZOLE
     Indication: ABDOMINAL PAIN UPPER
     Dosage: 1 DF, QD
  3. LYRICA [Concomitant]
     Active Substance: PREGABALIN
     Indication: PAIN
     Dosage: 1 DF, BID
  4. FORSTEO [Suspect]
     Active Substance: TERIPARATIDE
     Indication: OSTEOPOROSIS
     Dosage: 20 UG, QD
     Route: 058
     Dates: start: 20161104, end: 20161108
  5. FORMODUAL [Concomitant]
     Indication: BRONCHIECTASIS
     Dosage: 1 DF, BID
  6. BRETARIS GENUAIR [Concomitant]
     Active Substance: ACLIDINIUM BROMIDE
     Indication: BRONCHIECTASIS
     Dosage: 1 DF, BID

REACTIONS (6)
  - Insomnia [Unknown]
  - Vomiting [Unknown]
  - Diarrhoea [Unknown]
  - Weight decreased [Unknown]
  - Nausea [Recovering/Resolving]
  - Palpitations [Unknown]

NARRATIVE: CASE EVENT DATE: 20161104
